FAERS Safety Report 14944828 (Version 3)
Quarter: 2018Q2

REPORT INFORMATION
  Report Type: Report from Study
  Country: IT (occurrence: IT)
  Receive Date: 20180529
  Receipt Date: 20180607
  Transmission Date: 20180711
  Serious: Yes (Other)
  Sender: FDA-Public Use
  Company Number: IT-TEVA-2018-IT-897182

PATIENT
  Age: 49 Year
  Sex: Female

DRUGS (2)
  1. COPAXONE [Suspect]
     Active Substance: GLATIRAMER ACETATE
     Indication: MULTIPLE SCLEROSIS
     Route: 058
     Dates: start: 20171120
  2. CYMBALTA [Concomitant]
     Active Substance: DULOXETINE HYDROCHLORIDE
     Dosage: 30 MILLIGRAM DAILY;
     Route: 048

REACTIONS (17)
  - Dyspnoea [Recovered/Resolved]
  - Injection site mass [Recovered/Resolved]
  - Dyspnoea [Unknown]
  - Feeling hot [Unknown]
  - Hypoaesthesia [Unknown]
  - Skin discolouration [Unknown]
  - Blood pressure decreased [Unknown]
  - Injection site pain [Unknown]
  - Nasal congestion [Recovered/Resolved]
  - Musculoskeletal stiffness [Unknown]
  - Lip swelling [Recovered/Resolved]
  - Vomiting [Unknown]
  - Fluid overload [Recovered/Resolved]
  - Cyanosis [Recovered/Resolved]
  - Injection site erythema [Unknown]
  - Feeling abnormal [Unknown]
  - Depression [Unknown]

NARRATIVE: CASE EVENT DATE: 20180519
